FAERS Safety Report 19958108 (Version 1)
Quarter: 2021Q4

REPORT INFORMATION
  Report Type: Report from Study
  Country: FR (occurrence: FR)
  Receive Date: 20211015
  Receipt Date: 20211015
  Transmission Date: 20220303
  Serious: Yes (Hospitalization, Other)
  Sender: FDA-Public Use
  Company Number: FR-GW PHARMA-202103FRGW01382

PATIENT

DRUGS (5)
  1. EPIDIOLEX [Suspect]
     Active Substance: CANNABIDIOL
     Indication: Lennox-Gastaut syndrome
     Dosage: UNK, PRIOR TO DOSE INCREASE, INITIAL DOSE
     Route: 048
     Dates: start: 20210225, end: 2021
  2. EPIDIOLEX [Suspect]
     Active Substance: CANNABIDIOL
     Dosage: 8.57 MG/KG/DAY, 600 MILLIGRAM, QD
     Route: 048
     Dates: start: 2021, end: 20210323
  3. FELBAMATE [Concomitant]
     Active Substance: FELBAMATE
     Indication: Epilepsy
     Dosage: 1200 MILLIGRAM, QD
     Route: 065
     Dates: start: 20180613
  4. VALPROATE [Concomitant]
     Active Substance: VALPROIC ACID
     Indication: Epilepsy
     Dosage: 1250 MILLIGRAM, QD
     Route: 065
     Dates: start: 20190625
  5. LAMOTRIGINE [Concomitant]
     Active Substance: LAMOTRIGINE
     Indication: Epilepsy
     Dosage: 150 MILLIGRAM, QD
     Route: 065
     Dates: start: 20180613

REACTIONS (2)
  - Somnolence [Recovered/Resolved]
  - Seizure [Recovered/Resolved]

NARRATIVE: CASE EVENT DATE: 20210315
